FAERS Safety Report 13628555 (Version 2)
Quarter: 2019Q2

REPORT INFORMATION
  Report Type: Spontaneous
  Country: JP (occurrence: JP)
  Receive Date: 20170608
  Receipt Date: 20190621
  Transmission Date: 20190711
  Serious: Yes (Other)
  Sender: FDA-Public Use
  Company Number: JP-009507513-1705JPN010703

PATIENT
  Age: 69 Year
  Sex: Female

DRUGS (2)
  1. DAPTOMYCIN. [Suspect]
     Active Substance: DAPTOMYCIN
     Indication: STAPHYLOCOCCAL INFECTION
     Dosage: 6MG/KG/DAY FOR A TOTAL OF 26 DAYS, WITH 9 DAYS INTERMISSION
  2. DAPTOMYCIN. [Suspect]
     Active Substance: DAPTOMYCIN
     Indication: PLEURISY
     Dosage: 6MG/KG/DAY FOR A TOTAL OF 26 DAYS, WITH 9 DAYS INTERMISSION

REACTIONS (1)
  - Pathogen resistance [Recovered/Resolved]
